FAERS Safety Report 14407053 (Version 1)
Quarter: 2018Q1

REPORT INFORMATION
  Report Type: Report from Study
  Country: US (occurrence: US)
  Receive Date: 20180118
  Receipt Date: 20180118
  Transmission Date: 20180509
  Serious: Yes (Hospitalization, Other)
  Sender: FDA-Public Use
  Company Number: US-TAKEDA-2018TUS000399

PATIENT
  Sex: Female

DRUGS (6)
  1. VSL 3 PROBIOTIC [Concomitant]
     Dosage: UNK UNK, QD
     Dates: start: 2017
  2. CROMOLYN SODIUM. [Concomitant]
     Active Substance: CROMOLYN SODIUM
     Dosage: UNK UNK, QD
     Dates: start: 201712
  3. VEDOLIZUMAB [Suspect]
     Active Substance: VEDOLIZUMAB
     Dosage: UNK, Q4WEEKS
     Route: 042
     Dates: start: 2016
  4. APRISO [Concomitant]
     Active Substance: MESALAMINE
     Dosage: UNK UNK, QD
  5. VEDOLIZUMAB [Suspect]
     Active Substance: VEDOLIZUMAB
     Indication: COLITIS ULCERATIVE
     Dosage: 300 MG, UNK
     Route: 042
     Dates: start: 2015
  6. MESALAMINE. [Concomitant]
     Active Substance: MESALAMINE
     Dosage: 360 ML, 1/WEEK

REACTIONS (4)
  - Off label use [Unknown]
  - Abscess [Unknown]
  - Inflammatory marker increased [Not Recovered/Not Resolved]
  - Vulvovaginal discomfort [Unknown]

NARRATIVE: CASE EVENT DATE: 2015
